FAERS Safety Report 11348023 (Version 1)
Quarter: 2015Q3

REPORT INFORMATION
  Report Type: Spontaneous
  Country: US (occurrence: US)
  Receive Date: 20150803
  Receipt Date: 20150803
  Transmission Date: 20151125
  Serious: No
  Sender: FDA-Public Use
  Company Number: US-ELI_LILLY_AND_COMPANY-US201103003172

PATIENT
  Age: 97 Year
  Sex: Male

DRUGS (8)
  1. ZYPREXA [Suspect]
     Active Substance: OLANZAPINE
     Dosage: 15 MG, AS NEEDED
  2. ZYPREXA [Suspect]
     Active Substance: OLANZAPINE
     Dosage: 7.5 MG, AS NEEDED
  3. ZYPREXA [Suspect]
     Active Substance: OLANZAPINE
     Indication: SLEEP DISORDER
     Dosage: UNK, UNKNOWN
  4. ASPIRIN. [Concomitant]
     Active Substance: ASPIRIN
     Dosage: 81 MG, UNK
  5. PACERONE [Concomitant]
     Active Substance: AMIODARONE HYDROCHLORIDE
  6. SYNTHROID [Concomitant]
     Active Substance: LEVOTHYROXINE SODIUM
  7. MACROBID [Concomitant]
     Active Substance: NITROFURANTOIN\NITROFURANTOIN MONOHYDRATE
  8. ZYPREXA [Suspect]
     Active Substance: OLANZAPINE
     Dosage: UNK, UNKNOWN

REACTIONS (5)
  - Aggression [Unknown]
  - Dementia [Unknown]
  - Insomnia [Unknown]
  - Abnormal behaviour [Unknown]
  - Off label use [Not Recovered/Not Resolved]
